FAERS Safety Report 5818782-0 (Version None)
Quarter: 2008Q3

REPORT INFORMATION
  Report Type: 
  Country: None (occurrence: None)
  Receive Date: 20080721
  Receipt Date: 20080721
  Transmission Date: 20090109
  Serious: Yes (Life-Threatening, Other)
  Sender: FDA-Public Use
  Company Number: None

PATIENT
  Age: 24 Year
  Sex: Female
  Weight: 79.3795 kg

DRUGS (5)
  1. XOPENEX [Suspect]
     Indication: ASTHMA
     Dosage: 2 PUFFS EVERY 4-6 HOURS INHAL
     Route: 055
     Dates: start: 20080710, end: 20080716
  2. XOPENEX [Suspect]
     Indication: CHEST DISCOMFORT
     Dosage: 2 PUFFS EVERY 4-6 HOURS INHAL
     Route: 055
     Dates: start: 20080710, end: 20080716
  3. XOPENEX [Suspect]
     Indication: COUGH
     Dosage: 2 PUFFS EVERY 4-6 HOURS INHAL
     Route: 055
     Dates: start: 20080710, end: 20080716
  4. XOPENEX [Suspect]
     Indication: DYSPNOEA
     Dosage: 2 PUFFS EVERY 4-6 HOURS INHAL
     Route: 055
     Dates: start: 20080710, end: 20080716
  5. XOPENEX [Suspect]
     Indication: WHEEZING
     Dosage: 2 PUFFS EVERY 4-6 HOURS INHAL
     Route: 055
     Dates: start: 20080710, end: 20080716

REACTIONS (6)
  - DISORIENTATION [None]
  - DIZZINESS [None]
  - DRUG INEFFECTIVE [None]
  - HEART RATE INCREASED [None]
  - IMPAIRED WORK ABILITY [None]
  - PALPITATIONS [None]
